FAERS Safety Report 16288348 (Version 3)
Quarter: 2019Q2

REPORT INFORMATION
  Report Type: Spontaneous
  Country: IT (occurrence: IT)
  Receive Date: 20190508
  Receipt Date: 20190527
  Transmission Date: 20190711
  Serious: Yes (Other)
  Sender: FDA-Public Use
  Company Number: IT-SUN PHARMACEUTICAL INDUSTRIES LTD-2019RR-207323

PATIENT
  Sex: Female

DRUGS (7)
  1. ACETAMINOPHEN. [Concomitant]
     Active Substance: ACETAMINOPHEN
     Indication: HYPERPYREXIA
     Route: 065
  2. BACLOFEN MOLTENI [Suspect]
     Active Substance: BACLOFEN
     Dosage: 700 MICROGRAM, DAILY
     Route: 037
  3. BACLOFEN MOLTENI [Suspect]
     Active Substance: BACLOFEN
     Indication: SLEEP APNOEA SYNDROME
     Dosage: 450 MICROGRAM, DAILY
     Route: 037
  4. EN [Suspect]
     Active Substance: DELORAZEPAM
     Indication: PSYCHOMOTOR HYPERACTIVITY
     Dosage: 0.04 MILLIGRAM/KILOGRAM, DAILY
     Route: 048
  5. ENOXAPARIN [Concomitant]
     Active Substance: ENOXAPARIN
     Indication: PRODUCT USED FOR UNKNOWN INDICATION
     Route: 065
  6. BACLOFEN MOLTENI [Suspect]
     Active Substance: BACLOFEN
     Dosage: 600 MICROGRAM, DAILY
     Route: 037
  7. OMEPRAZOLE. [Concomitant]
     Active Substance: OMEPRAZOLE
     Indication: PRODUCT USED FOR UNKNOWN INDICATION
     Route: 065

REACTIONS (2)
  - Sleep apnoea syndrome [Recovering/Resolving]
  - Muscle spasticity [Recovering/Resolving]
